FAERS Safety Report 5145268-1 (Version None)
Quarter: 2006Q4

REPORT INFORMATION
  Report Type: 
  Country: None (occurrence: None)
  Receive Date: 20061101
  Receipt Date: 20061016
  Transmission Date: 20070319
  Serious: Yes (Hospitalization)
  Sender: FDA-Public Use
  Company Number: 231706

PATIENT
  Age: 65 Year
  Sex: Female

DRUGS (1)
  1. HERCEPTIN [Suspect]
     Indication: BREAST CANCER METASTATIC
     Dosage: 192 MG, SINGLE, INTRAVENOUS
     Route: 042
     Dates: start: 20061013, end: 20061013

REACTIONS (1)
  - ANAPHYLACTIC REACTION [None]
